FAERS Safety Report 5695433-X (Version None)
Quarter: 2008Q2

REPORT INFORMATION
  Report Type: 
  Country: None (occurrence: None)
  Receive Date: 20080403
  Receipt Date: 20080319
  Transmission Date: 20081010
  Serious: Yes (Life-Threatening)
  Sender: FDA-Public Use
  Company Number: SPV1-2008-00641

PATIENT
  Age: 6 Year
  Sex: Female
  Weight: 19.5 kg

DRUGS (4)
  1. VYVANSE [Suspect]
     Indication: ATTENTION DEFICIT/HYPERACTIVITY DISORDER
     Dosage: 30 MG, 1X/DAY:QD, ORAL
     Route: 048
     Dates: start: 20080223, end: 20080223
  2. SEROQUEL [Concomitant]
  3. IMIPRAMINE (MIPRAMINE) [Concomitant]
  4. REMERON [Concomitant]

REACTIONS (6)
  - COMPULSIONS [None]
  - DYSPNOEA [None]
  - DYSTONIA [None]
  - GRIMACING [None]
  - MANIA [None]
  - POOR QUALITY SLEEP [None]
